FAERS Safety Report 22618378 (Version 1)
Quarter: 2023Q2

REPORT INFORMATION
  Report Type: Spontaneous
  Country: RU (occurrence: RU)
  Receive Date: 20230620
  Receipt Date: 20230620
  Transmission Date: 20230722
  Serious: No
  Sender: FDA-Public Use
  Company Number: RU-PFM-2022-08124

PATIENT

DRUGS (6)
  1. PROPRANOLOL [Suspect]
     Active Substance: PROPRANOLOL HYDROCHLORIDE
     Indication: Cutaneovisceral angiomatosis with thrombocytopenia
     Dosage: 2 MG/KG/DAY
     Route: 065
  2. PROPRANOLOL [Suspect]
     Active Substance: PROPRANOLOL HYDROCHLORIDE
     Indication: Off label use
  3. CYCLOPHOSPHAMIDE [Concomitant]
     Active Substance: CYCLOPHOSPHAMIDE
     Indication: Cutaneovisceral angiomatosis with thrombocytopenia
     Dosage: 50 MG/M2/DAY, (TOTAL 750 MG/M2)
     Route: 065
  4. VINBLASTINE SULFATE [Concomitant]
     Active Substance: VINBLASTINE SULFATE
     Indication: Cutaneovisceral angiomatosis with thrombocytopenia
     Dosage: 1 MG/M 2 TO 3 TIMES A WEEK
     Route: 065
  5. VINBLASTINE SULFATE [Concomitant]
     Active Substance: VINBLASTINE SULFATE
     Dosage: 1 MG/M 2 TIMES
     Route: 065
  6. DOXORUBICIN [Concomitant]
     Active Substance: DOXORUBICIN
     Indication: Cutaneovisceral angiomatosis with thrombocytopenia
     Dosage: 45 MG/M2 ONCE EVERY 28 DAYS
     Route: 065

REACTIONS (2)
  - Drug ineffective for unapproved indication [Unknown]
  - Off label use [Unknown]
